FAERS Safety Report 9342753 (Version 1)
Quarter: 2013Q2

REPORT INFORMATION
  Report Type: Spontaneous
  Country: NL (occurrence: None)
  Receive Date: 20130529
  Receipt Date: 20130529
  Transmission Date: 20140414
  Serious: Yes (Hospitalization, Other)
  Sender: FDA-Public Use
  Company Number: NL-20130005

PATIENT
  Age: 63 Year
  Sex: Female

DRUGS (9)
  1. HEXABRIX 320 (IOXAGLIC ACID) UNKNOWN [Suspect]
     Indication: ARTERIOGRAM CORONARY
     Dosage: 180 ML,1 IN 1 TOTAL
     Route: 013
     Dates: start: 20130318, end: 20130318
  2. HEPARINE (HEPARINE)(HEPARINE) [Concomitant]
  3. LIDOCAINE (2 PCT.) [Concomitant]
  4. SODIUM CHLORIDE (SODIUM CHLORIDE)(SODIUM CHLORIDE) [Concomitant]
  5. METFORMINE (METFORMIN HYDROCHLORIDE)(METFORMIN HYDROCHLORIDE) [Concomitant]
  6. PRAVASTATINE (PRAVASTATIN SODIUM)(PRAVASTATIN SODIUM) [Concomitant]
  7. AMLODIPINE [Concomitant]
  8. LEVOTHYROXINE (LEVOTHYROXINE)(LEVOTHYROXINE) [Concomitant]
  9. METOPROLOL (METOPROLOL)(METOPROLOL) [Concomitant]

REACTIONS (3)
  - Chills [None]
  - Sepsis [None]
  - Leukopenia [None]
